FAERS Safety Report 5477656-8 (Version None)
Quarter: 2007Q4

REPORT INFORMATION
  Report Type: 
  Country: None (occurrence: None)
  Receive Date: 20071002
  Receipt Date: 20070917
  Transmission Date: 20080405
  Serious: Yes (Hospitalization)
  Sender: FDA-Public Use
  Company Number: HEXX-NO-0706C-0004

PATIENT
  Age: 65 Year
  Sex: Male

DRUGS (16)
  1. HEXVIX           (HEXAMINOLEVULINATE HYDROCHLORIDE)  (HEXVIX) [Suspect]
     Indication: BLADDER CANCER
     Dosage: 85 MG (SINGLE DOSE)
     Route: 043
     Dates: start: 20070518, end: 20070518
  2. CARBASALATE CALCIUM                  (CARBASALAATCALCIUM) [Concomitant]
  3. MORPHINE [Concomitant]
  4. DIPYRIDAMOLE [Concomitant]
  5. ENALAPRIL MALEATE [Concomitant]
  6. PANTOPRAZOLE SODIUM [Concomitant]
  7. FOLIC ACID [Concomitant]
  8. OXYBUTYNIN CHLORIDE [Concomitant]
  9. ACETYLCYSTEINE [Concomitant]
  10. ISOSORBIDE MONONITRATE          (MONO CEDOCARD RETARD) [Concomitant]
  11. METOPROLOL [Concomitant]
  12. AMITRIPTYLINE HCL [Concomitant]
  13. SIMVASTATIN [Concomitant]
  14. PARACETAMOL [Concomitant]
  15. NADROPARIN [Concomitant]
  16. FENTANYL [Concomitant]

REACTIONS (2)
  - ANGINA PECTORIS [None]
  - CORONARY ARTERY DISEASE [None]
